FAERS Safety Report 10354465 (Version 1)
Quarter: 2014Q3

REPORT INFORMATION
  Report Type: Spontaneous
  Country: RO (occurrence: None)
  Receive Date: 20140729
  Receipt Date: 20140729
  Transmission Date: 20150326
  Serious: Yes (Other)
  Sender: FDA-Public Use
  Company Number: VAL_03248_2014

PATIENT
  Age: 79 Year
  Sex: Female

DRUGS (18)
  1. NIFEDIPINE. [Suspect]
     Active Substance: NIFEDIPINE
     Indication: HYPERTENSION
  2. GINKO BILOBA [Concomitant]
  3. TRAMADOL [Concomitant]
     Active Substance: TRAMADOL
  4. GENTAMICIN [Concomitant]
     Active Substance: GENTAMICIN
  5. DICLOFENAC [Concomitant]
     Active Substance: DICLOFENAC
  6. KETOPROFEN. [Concomitant]
     Active Substance: KETOPROFEN
  7. FLUPENTIXOL [Concomitant]
     Active Substance: FLUPENTIXOL
  8. METFORMIN [Concomitant]
     Active Substance: METFORMIN HYDROCHLORIDE
  9. DIAZEPAM. [Concomitant]
     Active Substance: DIAZEPAM
  10. ISOPHANE INSULIN [Concomitant]
     Active Substance: INSULIN NOS
  11. METAMIZOLE [Concomitant]
     Active Substance: METAMIZOLE
  12. PIRACETAM [Concomitant]
     Active Substance: PIRACETAM
  13. SIMVASTATIN. [Concomitant]
     Active Substance: SIMVASTATIN
  14. DIOSMIN [Concomitant]
     Active Substance: DIOSMIN
  15. TRIMETAZIDINE [Concomitant]
     Active Substance: TRIMETAZIDINE
  16. METOPROLOL TARTRATE. [Suspect]
     Active Substance: METOPROLOL TARTRATE
     Indication: HYPERTENSION
  17. ASPIRIN. [Concomitant]
     Active Substance: ASPIRIN
  18. PENTAERYTHRITOL TETRANITRATE [Concomitant]
     Active Substance: PENTAERYTHRITOL TETRANITRATE

REACTIONS (3)
  - Blood pressure fluctuation [None]
  - Blood pressure increased [None]
  - Blood pressure inadequately controlled [None]
